FAERS Safety Report 7627544-3 (Version None)
Quarter: 2011Q3

REPORT INFORMATION
  Report Type: 
  Country: None (occurrence: None)
  Receive Date: 20110721
  Receipt Date: 20110719
  Transmission Date: 20111222
  Serious: Yes (Other)
  Sender: FDA-Public Use
  Company Number: US-AMGEN-USASP2011035695

PATIENT
  Age: 28 Year
  Sex: Female
  Weight: 51.701 kg

DRUGS (2)
  1. NPLATE [Suspect]
     Indication: IDIOPATHIC THROMBOCYTOPENIC PURPURA
     Dosage: 9 A?G, UNK
     Route: 058
     Dates: start: 20101130
  2. IMMUNOGLOBULINS [Concomitant]
     Dosage: 24 G, PRN
     Dates: start: 20110511, end: 20110707

REACTIONS (2)
  - PLATELET COUNT DECREASED [None]
  - THERAPEUTIC RESPONSE DECREASED [None]
